FAERS Safety Report 7053984-X (Version None)
Quarter: 2010Q4

REPORT INFORMATION
  Report Type: 
  Country: None (occurrence: None)
  Receive Date: 20101020
  Receipt Date: 20101012
  Transmission Date: 20110411
  Serious: Yes (Other)
  Sender: FDA-Public Use
  Company Number: CZ-TYCO HEALTHCARE/MALLINCKRODT-T201002124

PATIENT
  Age: 57 Year
  Sex: Female

DRUGS (1)
  1. MORPHINE [Suspect]
     Indication: POST LAMINECTOMY SYNDROME
     Dosage: 5 MG, QD
     Route: 037

REACTIONS (1)
  - GRANULOMA [None]
